FAERS Safety Report 6056337-6 (Version None)
Quarter: 2009Q1

REPORT INFORMATION
  Report Type: 
  Country: None (occurrence: None)
  Receive Date: 20090129
  Receipt Date: 20090123
  Transmission Date: 20090719
  Serious: Yes (Hospitalization, Other)
  Sender: FDA-Public Use
  Company Number: ES-BRISTOL-MYERS SQUIBB COMPANY-14481808

PATIENT
  Age: 66 Year

DRUGS (4)
  1. CETUXIMAB [Suspect]
     Indication: COLON CANCER
     Dosage: 85 MG/M2; INITIAL INFUSION ON 26-FEB-2008
     Route: 042
     Dates: start: 20080226, end: 20080401
  2. OXALIPLATIN [Suspect]
     Indication: COLON CANCER
     Dosage: INITIAL DOSE ON 26-FEB-2008
     Route: 042
     Dates: start: 20080226, end: 20080401
  3. FLUOROURACIL [Suspect]
     Indication: COLON CANCER
     Dosage: INITIAL DOSE ON 26-FEB-2008
     Route: 042
     Dates: start: 20080226, end: 20080402
  4. FOLINIC ACID [Suspect]
     Indication: COLON CANCER
     Dosage: INITIAL DOSE ON 26-FEB-2008
     Route: 042
     Dates: start: 20080226, end: 20080402

REACTIONS (3)
  - ANOREXIA [None]
  - ASTHENIA [None]
  - WEIGHT DECREASED [None]
